FAERS Safety Report 20782714 (Version 2)
Quarter: 2022Q2

REPORT INFORMATION
  Report Type: Spontaneous
  Country: AT (occurrence: AT)
  Receive Date: 20220504
  Receipt Date: 20220629
  Transmission Date: 20220721
  Serious: Yes (Other)
  Sender: FDA-Public Use
  Company Number: AT-ROCHE-3076502

PATIENT
  Age: 58 Year

DRUGS (8)
  1. DEXAMETHASONE [Suspect]
     Active Substance: DEXAMETHASONE
     Indication: Prophylaxis
     Route: 065
  2. POMALIDOMIDE [Suspect]
     Active Substance: POMALIDOMIDE
     Indication: Prophylaxis
     Route: 065
     Dates: start: 201712, end: 20210420
  3. POMALIDOMIDE [Suspect]
     Active Substance: POMALIDOMIDE
     Indication: Plasma cell myeloma
  4. RITUXIMAB [Suspect]
     Active Substance: RITUXIMAB
     Indication: Prophylaxis
     Route: 065
  5. CARFILZOMIB [Suspect]
     Active Substance: CARFILZOMIB
     Indication: Prophylaxis
     Route: 065
  6. COMIRNATY [Suspect]
     Active Substance: TOZINAMERAN
     Indication: COVID-19 immunisation
     Dosage: NEXT DOSE ON 03/FEB/2021
     Route: 065
     Dates: start: 20210111
  7. BORTEZOMIB [Concomitant]
     Active Substance: BORTEZOMIB
     Indication: Prophylaxis
  8. BORTEZOMIB [Concomitant]
     Active Substance: BORTEZOMIB

REACTIONS (3)
  - Hypogammaglobulinaemia [Unknown]
  - Neutropenia [Unknown]
  - Lymphopenia [Unknown]
